FAERS Safety Report 6693078-6 (Version None)
Quarter: 2010Q2

REPORT INFORMATION
  Report Type: 
  Country: None (occurrence: None)
  Receive Date: 20100420
  Receipt Date: 20100409
  Transmission Date: 20101027
  Serious: Yes (Other)
  Sender: FDA-Public Use
  Company Number: ACO_00693_2010

PATIENT

DRUGS (1)
  1. AMPYRA [Suspect]
     Indication: MULTIPLE SCLEROSIS
     Dosage: (10 MG 1X ORAL)
     Route: 048
     Dates: start: 20100101, end: 20100101

REACTIONS (1)
  - CONVULSION [None]
